FAERS Safety Report 13539332 (Version 1)
Quarter: 2017Q2

REPORT INFORMATION
  Report Type: Spontaneous
  Country: US (occurrence: US)
  Receive Date: 20170511
  Receipt Date: 20170511
  Transmission Date: 20170830
  Serious: Yes (Hospitalization)
  Sender: FDA-Public Use
  Company Number: None

PATIENT
  Age: 55 Year
  Sex: Male

DRUGS (18)
  1. COUMADIN [Concomitant]
     Active Substance: WARFARIN SODIUM
  2. FORTEO [Concomitant]
     Active Substance: TERIPARATIDE
  3. ITRACONAZOLE. [Concomitant]
     Active Substance: ITRACONAZOLE
  4. ASPIRIN. [Concomitant]
     Active Substance: ASPIRIN
  5. PREMARIN [Concomitant]
     Active Substance: ESTROGENS, CONJUGATED
  6. TACROLIMUS 1 MG [Suspect]
     Active Substance: TACROLIMUS
     Indication: TRANSPLANT
     Dosage: 1 MG CAP EVERY EVENING ORAL
     Route: 048
     Dates: start: 20100401
  7. TACROLIMUS 0.5MG [Suspect]
     Active Substance: TACROLIMUS
     Indication: TRANSPLANT
     Dosage: 1 MG CAP EVERY MORNING ORAL
     Route: 048
     Dates: start: 20100401
  8. DEXILENT [Concomitant]
  9. METOPROLOL. [Concomitant]
     Active Substance: METOPROLOL
  10. BRILINTA [Concomitant]
     Active Substance: TICAGRELOR
  11. SODIUM BICARB [Concomitant]
     Active Substance: SODIUM BICARBONATE
  12. FUROSEMIDE. [Concomitant]
     Active Substance: FUROSEMIDE
  13. LEVOXYL [Concomitant]
     Active Substance: LEVOTHYROXINE SODIUM
  14. IMURAN [Concomitant]
     Active Substance: AZATHIOPRINE
  15. SULFAMETHAZOLE [Concomitant]
  16. PLAVIX [Concomitant]
     Active Substance: CLOPIDOGREL BISULFATE
  17. DRONABINOL. [Concomitant]
     Active Substance: DRONABINOL
  18. PREDNISONE. [Concomitant]
     Active Substance: PREDNISONE

REACTIONS (1)
  - Respiratory tract infection fungal [None]
